FAERS Safety Report 19146601 (Version 3)
Quarter: 2021Q3

REPORT INFORMATION
  Report Type: Spontaneous
  Country: JP (occurrence: JP)
  Receive Date: 20210416
  Receipt Date: 20210726
  Transmission Date: 20211014
  Serious: Yes (Death, Hospitalization, Other)
  Sender: FDA-Public Use
  Company Number: JP-PFIZER INC-2021401793

PATIENT
  Age: 94 Year
  Sex: Female

DRUGS (11)
  1. THYRADIN [Suspect]
     Active Substance: LEVOTHYROXINE
     Dosage: 25 UG/DAY, UNKNOWN FREQ
     Route: 048
  2. FEBURIC [Suspect]
     Active Substance: FEBUXOSTAT
     Dosage: 20 MG/DAY, UNKNOWN FREQ.
     Route: 048
  3. FUROSEMIDE. [Suspect]
     Active Substance: FUROSEMIDE
     Dosage: 20 MG/DAY, UNKNOWN FREQ
     Route: 048
  4. MOHRUS [Concomitant]
     Active Substance: KETOPROFEN
     Dosage: 120 MG/DAY, UNKNOWN FREQ (TAPE (INCLUDING POULTICE) )
  5. PICOSULFATE NA [Concomitant]
     Active Substance: SODIUM PICOSULFATE
     Dosage: UNK
     Route: 048
  6. MOHRUS [Concomitant]
     Active Substance: KETOPROFEN
     Dosage: 20 MG/DAY, UNKNOWN FREQ (TAPE (INCLUDING POULTICE) )
  7. AMLODIPINE BESILATE [Suspect]
     Active Substance: AMLODIPINE BESYLATE
     Dosage: 2.5 MG, 1X/DAY
     Route: 048
  8. EVRENZO [Suspect]
     Active Substance: ROXADUSTAT
     Indication: NEPHROGENIC ANAEMIA
     Dosage: 50 MG/DAY, UNKNOWN FREQ.
     Route: 048
     Dates: start: 20210121, end: 20210130
  9. ATORVASTATIN SANDOZ [Suspect]
     Active Substance: ATORVASTATIN
     Indication: HYPERCHOLESTEROLAEMIA
     Dosage: 5 MG, 1X/DAY
     Route: 048
  10. NEXIUM [Concomitant]
     Active Substance: ESOMEPRAZOLE MAGNESIUM
     Dosage: 20 MG/DAY, UNKNOWN FREQ.
     Route: 048
  11. MIRCERA [Concomitant]
     Active Substance: METHOXY POLYETHYLENE GLYCOL-EPOETIN BETA
     Indication: NEPHROGENIC ANAEMIA

REACTIONS (5)
  - Product use issue [Unknown]
  - Off label use [Unknown]
  - Angina pectoris [Recovering/Resolving]
  - Intestinal perforation [Fatal]
  - Venous thrombosis limb [Not Recovered/Not Resolved]

NARRATIVE: CASE EVENT DATE: 20210121
